FAERS Safety Report 19836527 (Version 1)
Quarter: 2021Q3

REPORT INFORMATION
  Report Type: Spontaneous
  Country: US (occurrence: US)
  Receive Date: 20210916
  Receipt Date: 20210916
  Transmission Date: 20211014
  Serious: No
  Sender: FDA-Public Use
  Company Number: US-SA-2021SA301788

PATIENT
  Sex: Male

DRUGS (1)
  1. KEVZARA [Suspect]
     Active Substance: SARILUMAB
     Indication: PSORIATIC ARTHROPATHY
     Dosage: 300 MG, QOW
     Route: 058
     Dates: start: 202006

REACTIONS (4)
  - Condition aggravated [Unknown]
  - Arthralgia [Unknown]
  - Product use in unapproved indication [Unknown]
  - Joint swelling [Unknown]

NARRATIVE: CASE EVENT DATE: 202006
